FAERS Safety Report 11297206 (Version 1)
Quarter: 2015Q3

REPORT INFORMATION
  Report Type: Spontaneous
  Country: US (occurrence: US)
  Receive Date: 20150722
  Receipt Date: 20150722
  Transmission Date: 20151125
  Serious: No
  Sender: FDA-Public Use
  Company Number: US-ELI_LILLY_AND_COMPANY-US201102000894

PATIENT
  Sex: Female
  Weight: 63.49 kg

DRUGS (1)
  1. EFFIENT [Suspect]
     Active Substance: PRASUGREL HYDROCHLORIDE
     Indication: ATRIAL SEPTAL DEFECT REPAIR
     Dosage: FOUR MONTHS PATIENT ON PRASUGREL
     Route: 048
     Dates: start: 20100607

REACTIONS (1)
  - Aspartate aminotransferase increased [Recovered/Resolved]
